FAERS Safety Report 21401759 (Version 1)
Quarter: 2022Q3

REPORT INFORMATION
  Report Type: Spontaneous
  Country: US (occurrence: None)
  Receive Date: 20220930
  Receipt Date: 20220930
  Transmission Date: 20221027
  Serious: No
  Sender: FDA-Public Use
  Company Number: None

PATIENT
  Sex: Female
  Weight: 85.73 kg

DRUGS (12)
  1. CAPECITABINE [Suspect]
     Active Substance: CAPECITABINE
     Indication: Breast cancer
     Dosage: FREQUENCY : TWICE A DAY;?
     Route: 048
     Dates: start: 202205, end: 20220930
  2. ALENDRONATE [Concomitant]
     Active Substance: ALENDRONATE SODIUM
  3. APPLE CIDER VINEGAR [Concomitant]
     Active Substance: APPLE CIDER VINEGAR
  4. Benadryl Allergy Childrens [Concomitant]
  5. CALTRATE WITH VITAMIN D [Concomitant]
     Active Substance: CALCIUM CARBONATE\CHOLECALCIFEROL
  6. CLARITIN [Concomitant]
     Active Substance: LORATADINE
  7. FLAXSEED [Concomitant]
     Active Substance: FLAX SEED
  8. Fluticasone (Nasal) [Concomitant]
  9. LATANOPROST [Concomitant]
     Active Substance: LATANOPROST
  10. MELATONIN [Concomitant]
     Active Substance: MELATONIN
  11. Multivitamins/Minerals [Concomitant]
  12. STOOL SOFTENER (DOCUSATE) [Concomitant]
     Active Substance: DOCUSATE

REACTIONS (1)
  - Disease progression [None]
